FAERS Safety Report 8489183-4 (Version None)
Quarter: 2012Q3

REPORT INFORMATION
  Report Type: 
  Country: None (occurrence: None)
  Receive Date: 20120705
  Receipt Date: 20120621
  Transmission Date: 20120928
  Serious: Yes (Other)
  Sender: FDA-Public Use
  Company Number: NL-JNJFOC-20120610623

PATIENT
  Age: 28 Year
  Sex: Male

DRUGS (5)
  1. REMICADE [Suspect]
     Indication: COLITIS
     Route: 042
     Dates: start: 20091001, end: 20110301
  2. ASACOL [Concomitant]
     Route: 065
  3. PAROXETINE [Concomitant]
     Route: 065
  4. RISPERIDONE [Concomitant]
     Route: 065
  5. REMICADE [Suspect]
     Route: 042
     Dates: start: 20111201, end: 20120301

REACTIONS (4)
  - VISUAL IMPAIRMENT [None]
  - WEIGHT DECREASED [None]
  - ADVERSE EVENT [None]
  - MENTAL DISORDER [None]
